FAERS Safety Report 20919287 (Version 1)
Quarter: 2022Q2

REPORT INFORMATION
  Report Type: Other
  Country: ES (occurrence: None)
  Receive Date: 20220606
  Receipt Date: 20220606
  Transmission Date: 20220721
  Serious: Yes (Hospitalization, Other)
  Sender: FDA-Public Use
  Company Number: ES-Navinta LLC-000268

PATIENT
  Age: 48 Year
  Sex: Female
  Weight: 65 kg

DRUGS (3)
  1. RIBAVIRIN [Suspect]
     Active Substance: RIBAVIRIN
     Indication: Immunodeficiency common variable
     Dosage: 600 MG ORALLY, DIVIDED INTO TWO DAILY DOSES
     Route: 048
  2. NITAZOXANIDE [Concomitant]
     Active Substance: NITAZOXANIDE
     Indication: Immunodeficiency common variable
     Dosage: 500 MG TWICE DAILY FOR 30 DAYS
  3. RIBAVIRIN [Suspect]
     Active Substance: RIBAVIRIN
     Indication: Norovirus infection
     Dosage: 600 MG ORALLY, DIVIDED INTO TWO DAILY DOSES

REACTIONS (4)
  - Drug resistance [Unknown]
  - Condition aggravated [Unknown]
  - Immunodeficiency common variable [Unknown]
  - Enteropathy-associated T-cell lymphoma [Unknown]
